FAERS Safety Report 5750257-X (Version None)
Quarter: 2008Q2

REPORT INFORMATION
  Report Type: 
  Country: None (occurrence: None)
  Receive Date: 20080527
  Receipt Date: 20080519
  Transmission Date: 20081010
  Serious: Yes (Other)
  Sender: FDA-Public Use
  Company Number: US-PFIZER INC-2008043216

PATIENT
  Sex: Female
  Weight: 53.636 kg

DRUGS (2)
  1. VIAGRA [Suspect]
  2. ANTIHYPERTENSIVES [Concomitant]

REACTIONS (2)
  - SWOLLEN TONGUE [None]
  - TRANSMISSION OF DRUG VIA SEMEN [None]
